FAERS Safety Report 8261299-7 (Version None)
Quarter: 2012Q2

REPORT INFORMATION
  Report Type: 
  Country: None (occurrence: None)
  Receive Date: 20120402
  Receipt Date: 20120319
  Transmission Date: 20120825
  Serious: Yes (Death, Other)
  Sender: FDA-Public Use
  Company Number: 2012P1010542

PATIENT

DRUGS (1)
  1. HEPARIN [Suspect]
     Dosage: IV
     Route: 042

REACTIONS (1)
  - HAEMOTHORAX [None]
